FAERS Safety Report 22099805 (Version 1)
Quarter: 2023Q1

REPORT INFORMATION
  Report Type: Spontaneous
  Country: US (occurrence: US)
  Receive Date: 20230315
  Receipt Date: 20230315
  Transmission Date: 20230417
  Serious: Yes (Other)
  Sender: FDA-Public Use
  Company Number: US-PFIZER INC-PV202300048941

PATIENT
  Age: 59 Year
  Sex: Female

DRUGS (2)
  1. XELJANZ [Suspect]
     Active Substance: TOFACITINIB CITRATE
     Dosage: 5 MG, 2X/DAY
     Route: 048
     Dates: start: 201809
  2. XELJANZ [Suspect]
     Active Substance: TOFACITINIB CITRATE
     Dosage: 5 MG, 2X/DAY
     Route: 048

REACTIONS (22)
  - Leukopenia [Unknown]
  - Therapeutic product effect incomplete [Unknown]
  - Pain [Unknown]
  - Joint swelling [Unknown]
  - Peripheral swelling [Unknown]
  - Arthralgia [Recovering/Resolving]
  - Musculoskeletal stiffness [Recovering/Resolving]
  - Back pain [Unknown]
  - Condition aggravated [Unknown]
  - Gait disturbance [Unknown]
  - Limb asymmetry [Unknown]
  - Feeling hot [Unknown]
  - Weight abnormal [Unknown]
  - Paraesthesia [Recovering/Resolving]
  - Sensitivity to weather change [Unknown]
  - Dry eye [Unknown]
  - Arthropathy [Recovering/Resolving]
  - Osteopenia [Unknown]
  - Anaemia [Unknown]
  - Blood cholesterol abnormal [Unknown]
  - High density lipoprotein increased [Unknown]
  - Intentional product misuse [Unknown]

NARRATIVE: CASE EVENT DATE: 20220304
